FAERS Safety Report 13511010 (Version 1)
Quarter: 2017Q2

REPORT INFORMATION
  Report Type: Spontaneous
  Country: US (occurrence: US)
  Receive Date: 20170503
  Receipt Date: 20170503
  Transmission Date: 20170830
  Serious: Yes (Hospitalization)
  Sender: FDA-Public Use
  Company Number: US-SHIRE-US201709676

PATIENT
  Age: 62 Year
  Sex: Male

DRUGS (19)
  1. HUMIRA [Suspect]
     Active Substance: ADALIMUMAB
     Dosage: 160 MG, ONE DOSE (LOADING DOSE)
     Route: 058
  2. HUMIRA [Suspect]
     Active Substance: ADALIMUMAB
     Dosage: 80 MG, ONE DOSE (WEEK 2)
     Route: 058
  3. WARFARIN [Concomitant]
     Active Substance: WARFARIN
     Indication: HEART VALVE REPLACEMENT
     Dosage: UNK, UNKNOWN
     Route: 065
  4. HUMIRA [Suspect]
     Active Substance: ADALIMUMAB
     Dosage: 40 MG, OTHER (1 IN 2 WEEK)
     Route: 058
  5. NORTRIPTYLINE [Concomitant]
     Active Substance: NORTRIPTYLINE
     Indication: DEPRESSION
     Dosage: UNK, UNKNOWN
     Route: 065
  6. OMEPRAZOLE. [Concomitant]
     Active Substance: OMEPRAZOLE
     Indication: GASTROOESOPHAGEAL REFLUX DISEASE
     Dosage: UNK, UNKNOWN
     Route: 065
  7. FLUTICASONE. [Concomitant]
     Active Substance: FLUTICASONE
     Indication: HYPERSENSITIVITY
     Dosage: UNK, UNKNOWN
     Route: 065
  8. HUMIRA [Suspect]
     Active Substance: ADALIMUMAB
     Indication: CROHN^S DISEASE
     Dosage: 40 MG, OTHER (1 IN 2 WK)
     Route: 058
     Dates: start: 2016
  9. HUMIRA [Suspect]
     Active Substance: ADALIMUMAB
     Dosage: 80 MG, ONE DOSE (WEEK 2)
     Route: 058
     Dates: start: 2016, end: 2016
  10. ATORVASTATIN [Concomitant]
     Active Substance: ATORVASTATIN
     Indication: BLOOD CHOLESTEROL INCREASED
     Dosage: UNK, UNKNOWN
     Route: 065
  11. LISINOPRIL. [Concomitant]
     Active Substance: LISINOPRIL
     Indication: HYPERTENSION
     Dosage: UNK, UNKNOWN
     Route: 065
  12. AMLOPINE [Concomitant]
     Indication: HYPERTENSION
     Dosage: UNK, UNKNOWN
     Route: 065
  13. ATENOLOL. [Concomitant]
     Active Substance: ATENOLOL
     Indication: HEART VALVE REPLACEMENT
     Dosage: UNK, UNKNOWN
     Route: 065
  14. GATTEX [Suspect]
     Active Substance: TEDUGLUTIDE\WATER
     Indication: SHORT-BOWEL SYNDROME
     Dosage: UNK, UNKNOWN
     Route: 058
     Dates: start: 201606
  15. TPN [Suspect]
     Active Substance: AMINO ACIDS\DEXTROSE\ELECTROLYTES NOS\SOYBEAN OIL
     Dosage: UNK, OTHER (3500 THREE TIMES A WEEK)
     Route: 042
  16. ZOLPIDEM [Concomitant]
     Active Substance: ZOLPIDEM\ZOLPIDEM TARTRATE
     Indication: INSOMNIA
     Dosage: UNK, UNKNOWN
     Route: 065
  17. HUMIRA [Suspect]
     Active Substance: ADALIMUMAB
     Dosage: 160 MG, ONE DOSE (LOADING DOSE)
     Route: 058
     Dates: start: 201608, end: 201608
  18. TPN [Suspect]
     Active Substance: AMINO ACIDS\DEXTROSE\ELECTROLYTES NOS\SOYBEAN OIL
     Indication: SHORT-BOWEL SYNDROME
     Dosage: UNK, UNKNOWN (4000 THREE TIMES A WEEK)
     Route: 042
     Dates: start: 2015
  19. CLONAZEPAM. [Concomitant]
     Active Substance: CLONAZEPAM
     Indication: ANXIETY
     Dosage: UNK, UNKNOWN
     Route: 065

REACTIONS (2)
  - Hepatic enzyme increased [Unknown]
  - Hepatic steatosis [Unknown]

NARRATIVE: CASE EVENT DATE: 201701
